FAERS Safety Report 22175860 (Version 1)
Quarter: 2023Q2

REPORT INFORMATION
  Report Type: Spontaneous
  Country: ES (occurrence: ES)
  Receive Date: 20230405
  Receipt Date: 20230405
  Transmission Date: 20230722
  Serious: Yes (Hospitalization)
  Sender: FDA-Public Use
  Company Number: None

PATIENT
  Sex: Male

DRUGS (2)
  1. CARBOPLATIN [Suspect]
     Active Substance: CARBOPLATIN
     Indication: Product used for unknown indication
     Dosage: STRENGTH:  10 MG/ML,  1 VIAL OF 60 ML
     Dates: start: 20220927
  2. ETOPOSIDE [Concomitant]
     Active Substance: ETOPOSIDE
     Dosage: STRENGTH: 20 MG/ML, 1 VIAL OF 5 ML
     Dates: start: 20220808

REACTIONS (1)
  - Pancytopenia [Recovered/Resolved]

NARRATIVE: CASE EVENT DATE: 20221102
